FAERS Safety Report 14269666 (Version 2)
Quarter: 2018Q3

REPORT INFORMATION
  Report Type: Spontaneous
  Country: US (occurrence: US)
  Receive Date: 20171211
  Receipt Date: 20180709
  Transmission Date: 20181010
  Serious: Yes (Hospitalization, Other)
  Sender: FDA-Public Use
  Company Number: US-OTSUKA-2016_030432

PATIENT
  Sex: Male

DRUGS (4)
  1. ABILIFY [Suspect]
     Active Substance: ARIPIPRAZOLE
     Dosage: 30 MG, UNK
     Route: 065
     Dates: end: 20140707
  2. ABILIFY [Suspect]
     Active Substance: ARIPIPRAZOLE
     Indication: SCHIZOPHRENIA
     Dosage: 5 MG, UNK
     Route: 065
     Dates: start: 20051201
  3. ABILIFY [Suspect]
     Active Substance: ARIPIPRAZOLE
     Indication: MAJOR DEPRESSION
     Dosage: 10 MG, UNK
     Route: 065
  4. ABILIFY [Suspect]
     Active Substance: ARIPIPRAZOLE
     Indication: DEPRESSION
     Dosage: 20 MG, UNK
     Route: 065

REACTIONS (10)
  - Suicide attempt [Recovered/Resolved]
  - Eating disorder [Recovered/Resolved]
  - Gambling disorder [Recovered/Resolved]
  - Economic problem [Unknown]
  - Injury [Unknown]
  - Obsessive-compulsive disorder [Recovered/Resolved]
  - Neuropsychiatric symptoms [Unknown]
  - Mental disorder [Unknown]
  - Emotional distress [Unknown]
  - Suicidal ideation [Recovered/Resolved]
